FAERS Safety Report 14133452 (Version 4)
Quarter: 2018Q1

REPORT INFORMATION
  Report Type: Report from Study
  Country: None (occurrence: GB)
  Receive Date: 20171027
  Receipt Date: 20180104
  Transmission Date: 20180508
  Serious: Yes (Hospitalization)
  Sender: FDA-Public Use
  Company Number: GB-ABBVIE-17S-167-2140196-00

PATIENT
  Age: 71 Year
  Sex: Female

DRUGS (2)
  1. MORPHINE [Concomitant]
     Active Substance: MORPHINE
     Indication: PRODUCT USED FOR UNKNOWN INDICATION
  2. DUODOPA [Suspect]
     Active Substance: CARBIDOPA\LEVODOPA
     Indication: PARKINSON^S DISEASE
     Dosage: 1 CASSETTE, 100 ML CASSETTE
     Route: 050

REACTIONS (8)
  - On and off phenomenon [Unknown]
  - Lower limb fracture [Unknown]
  - Hip fracture [Unknown]
  - Fall [Unknown]
  - Drug effect decreased [Unknown]
  - Mobility decreased [Unknown]
  - Confusional state [Unknown]
  - Parkinson^s disease [Unknown]

NARRATIVE: CASE EVENT DATE: 201712
